FAERS Safety Report 5933751-8 (Version None)
Quarter: 2008Q4

REPORT INFORMATION
  Report Type: 
  Country: None (occurrence: None)
  Receive Date: 20081024
  Receipt Date: 20081014
  Transmission Date: 20090506
  Serious: Yes (Death, Congenital Anomaly)
  Sender: FDA-Public Use
  Company Number: 100#03#2008-05143

PATIENT
  Sex: Male

DRUGS (4)
  1. VENLAFAXINE HCL [Suspect]
     Indication: DRUG EXPOSURE DURING PREGNANCY
     Dosage: 150 MG; TRANSPLACENTAL
     Route: 064
  2. OLANZAPINE [Suspect]
     Indication: DRUG EXPOSURE DURING PREGNANCY
     Dosage: 15 MG; TRANSPLACENTAL
     Route: 064
  3. CODEINE PHOSPHATE (CODEINE) [Suspect]
     Indication: DRUG EXPOSURE DURING PREGNANCY
     Dosage: 60 MG; TRANSPLACENTAL
     Route: 064
     Dates: start: 20080201, end: 20080201
  4. LACTULOSE [Suspect]
     Indication: DRUG EXPOSURE DURING PREGNANCY
     Dosage: 3.25 MG, TRANSPLACENTAL
     Route: 064
     Dates: start: 20080201, end: 20080201

REACTIONS (4)
  - DIAPHRAGMATIC HERNIA [None]
  - MATERNAL DRUGS AFFECTING FOETUS [None]
  - PREMATURE BABY [None]
  - PULMONARY HYPOPLASIA [None]
